FAERS Safety Report 9198887 (Version 1)
Quarter: 2013Q1

REPORT INFORMATION
  Report Type: Spontaneous
  Country: FR (occurrence: FR)
  Receive Date: 20130329
  Receipt Date: 20130329
  Transmission Date: 20140127
  Serious: Yes (Other)
  Sender: FDA-Public Use
  Company Number: FR-009507513-1303FRA011809

PATIENT
  Age: 56 Year
  Sex: Male

DRUGS (5)
  1. ISENTRESS [Suspect]
     Indication: HIV INFECTION
     Dosage: 400 MG, BID
     Route: 048
     Dates: start: 201203, end: 201302
  2. KIVEXA [Concomitant]
     Dosage: 1 DF, QD
     Route: 048
     Dates: start: 201203
  3. CELSENTRI [Concomitant]
     Dosage: 150 MG, QD
     Route: 048
     Dates: start: 201203
  4. CRESTOR [Concomitant]
  5. METFORMIN [Concomitant]

REACTIONS (1)
  - Pancreatitis [Recovered/Resolved]
